FAERS Safety Report 15806108 (Version 1)
Quarter: 2019Q1

REPORT INFORMATION
  Report Type: Spontaneous
  Country: US (occurrence: US)
  Receive Date: 20190109
  Receipt Date: 20190109
  Transmission Date: 20190417
  Serious: Yes (Disabling)
  Sender: FDA-Public Use
  Company Number: None

PATIENT
  Age: 26 Year
  Sex: Female
  Weight: 89.55 kg

DRUGS (3)
  1. DULOXETINE. [Suspect]
     Active Substance: DULOXETINE
     Indication: MAJOR DEPRESSION
     Dosage: ?          QUANTITY:1 CAPSULE(S);?
     Route: 048
     Dates: start: 20170816, end: 20190109
  2. DULOXETINE. [Suspect]
     Active Substance: DULOXETINE
     Indication: GENERALISED ANXIETY DISORDER
     Dosage: ?          QUANTITY:1 CAPSULE(S);?
     Route: 048
     Dates: start: 20170816, end: 20190109
  3. WELLBUTRIN XL [Concomitant]
     Active Substance: BUPROPION HYDROCHLORIDE

REACTIONS (7)
  - Hypohidrosis [None]
  - Nausea [None]
  - Vomiting [None]
  - Fatigue [None]
  - Headache [None]
  - Withdrawal syndrome [None]
  - Anxiety [None]

NARRATIVE: CASE EVENT DATE: 20190109
